APPROVED DRUG PRODUCT: SPIRONOLACTONE
Active Ingredient: SPIRONOLACTONE
Strength: 25MG
Dosage Form/Route: TABLET;ORAL
Application: A089364 | Product #001
Applicant: SUPERPHARM CORP
Approved: Nov 7, 1986 | RLD: No | RS: No | Type: DISCN